FAERS Safety Report 8213423-X (Version None)
Quarter: 2012Q1

REPORT INFORMATION
  Report Type: 
  Country: None (occurrence: None)
  Receive Date: 20120315
  Receipt Date: 20120301
  Transmission Date: 20120608
  Serious: Yes (Death, Hospitalization)
  Sender: FDA-Public Use
  Company Number: ES-ROCHE-1040984

PATIENT
  Age: 46 Year
  Sex: Male
  Weight: 68 kg

DRUGS (3)
  1. ALPRAZOLAM [Concomitant]
     Dates: start: 20120101, end: 20120209
  2. VEMURAFENIB [Suspect]
     Indication: METASTATIC MALIGNANT MELANOMA
     Dosage: DATE OF LAST DOSE PRIOR TO SAE: 30 JAN 2012
     Route: 048
     Dates: start: 20120105
  3. PRIMPERAN (SPAIN) [Concomitant]
     Dosage: 10 MG/ML
     Dates: start: 20120101, end: 20120209

REACTIONS (1)
  - DRUG INTOLERANCE [None]
